FAERS Safety Report 17008309 (Version 2)
Quarter: 2020Q1

REPORT INFORMATION
  Report Type: Spontaneous
  Country: JP (occurrence: JP)
  Receive Date: 20191108
  Receipt Date: 20200116
  Transmission Date: 20200409
  Serious: Yes (Hospitalization)
  Sender: FDA-Public Use
  Company Number: JP-SUN PHARMACEUTICAL INDUSTRIES LTD-2019RR-227046

PATIENT
  Age: 59 Year
  Sex: Female

DRUGS (11)
  1. CALCIUM FOLINAT [Suspect]
     Active Substance: LEUCOVORIN CALCIUM
     Indication: CHEMOTHERAPY
     Dosage: UNK
     Route: 065
  2. IRINOTECAN [Suspect]
     Active Substance: IRINOTECAN
     Indication: CHEMOTHERAPY
     Dosage: UNK
     Route: 065
  3. CETUXIMAB. [Suspect]
     Active Substance: CETUXIMAB
     Indication: CHEMOTHERAPY
     Route: 065
  4. TRIFLURIDINE-TIPIRACIL [Suspect]
     Active Substance: TIPIRACIL HYDROCHLORIDE\TRIFLURIDINE
     Indication: CHEMOTHERAPY
     Route: 065
  5. OXALIPLATIN. [Suspect]
     Active Substance: OXALIPLATIN
     Indication: CHEMOTHERAPY
     Dosage: 8 COURSES
     Route: 065
  6. BEVACIZUMAB. [Suspect]
     Active Substance: BEVACIZUMAB
     Indication: CHEMOTHERAPY
     Dosage: UNK
     Route: 065
  7. REGORAFENIB. [Suspect]
     Active Substance: REGORAFENIB
     Indication: PRODUCT USED FOR UNKNOWN INDICATION
     Dosage: 160 MILLIGRAM, DAILY
     Route: 065
  8. REGORAFENIB. [Suspect]
     Active Substance: REGORAFENIB
     Dosage: 80 MILLIGRAM
     Route: 065
  9. CAPECITABINE. [Suspect]
     Active Substance: CAPECITABINE
     Indication: CHEMOTHERAPY
     Dosage: 8 COURSES
     Route: 065
  10. FLUOROURACIL. [Suspect]
     Active Substance: FLUOROURACIL
     Indication: CHEMOTHERAPY
     Route: 065
  11. PANITUMUMAB [Suspect]
     Active Substance: PANITUMUMAB
     Indication: CHEMOTHERAPY
     Route: 065

REACTIONS (4)
  - Weight decreased [Unknown]
  - Drug hypersensitivity [Unknown]
  - Neuropathy peripheral [Unknown]
  - Drug ineffective [Unknown]
